FAERS Safety Report 17016713 (Version 1)
Quarter: 2019Q4

REPORT INFORMATION
  Report Type: Spontaneous
  Country: GB (occurrence: GB)
  Receive Date: 20191111
  Receipt Date: 20191111
  Transmission Date: 20200122
  Serious: Yes (Death, Other)
  Sender: FDA-Public Use
  Company Number: GB-BRISTOL-MYERS SQUIBB COMPANY-BMS-2019-104364

PATIENT

DRUGS (2)
  1. DAKTARIN [MICONAZOLE] [Interacting]
     Active Substance: MICONAZOLE
     Indication: CANDIDA INFECTION
     Dosage: UNK
     Route: 048
  2. WARFARIN SODIUM. [Suspect]
     Active Substance: WARFARIN SODIUM
     Indication: PRODUCT USED FOR UNKNOWN INDICATION
     Dosage: UNK
     Route: 065

REACTIONS (3)
  - Labelled drug-drug interaction medication error [Fatal]
  - Product prescribing issue [Fatal]
  - Haemorrhage intracranial [Fatal]
